FAERS Safety Report 19204798 (Version 1)
Quarter: 2021Q2

REPORT INFORMATION
  Report Type: Spontaneous
  Country: US (occurrence: US)
  Receive Date: 20210430
  Receipt Date: 20210430
  Transmission Date: 20210717
  Serious: Yes (Other)
  Sender: FDA-Public Use
  Company Number: None

PATIENT
  Age: 78 Year
  Sex: Male
  Weight: 81 kg

DRUGS (20)
  1. ASPIRIN. [Concomitant]
     Active Substance: ASPIRIN
  2. BACLOFEN. [Concomitant]
     Active Substance: BACLOFEN
  3. NORCO [Concomitant]
     Active Substance: ACETAMINOPHEN\HYDROCODONE BITARTRATE
  4. ELIQUIS [Concomitant]
     Active Substance: APIXABAN
  5. NPH INSULIN [Concomitant]
     Active Substance: INSULIN BEEF
  6. LANSOPRAZOL [Concomitant]
     Active Substance: LANSOPRAZOLE
  7. CALCIUM AND MAGNESIUM CITRATE [Concomitant]
  8. POTASSIUM [Concomitant]
     Active Substance: POTASSIUM
  9. ZINC. [Concomitant]
     Active Substance: ZINC
  10. FEXOFENADINE [Concomitant]
     Active Substance: FEXOFENADINE HYDROCHLORIDE
  11. LIDOCAINE. [Concomitant]
     Active Substance: LIDOCAINE
  12. ENTRESTO [Suspect]
     Active Substance: SACUBITRIL\VALSARTAN
     Indication: PRODUCT USED FOR UNKNOWN INDICATION
     Dosage: ?          QUANTITY:1 TABLET(S);?
     Route: 048
     Dates: start: 20210421, end: 20210428
  13. VITAMIN D [Concomitant]
     Active Substance: VITAMIN D NOS
  14. INSULIN ASPART [Concomitant]
     Active Substance: INSULIN ASPART
  15. AJOVY [Concomitant]
     Active Substance: FREMANEZUMAB-VFRM
  16. DOCUSATE SODIUM. [Concomitant]
     Active Substance: DOCUSATE SODIUM
  17. SENNOSIDES. [Concomitant]
     Active Substance: SENNOSIDES
  18. TORSEMIDE. [Concomitant]
     Active Substance: TORSEMIDE
  19. VIT B [Concomitant]
     Active Substance: VITAMIN B
  20. DILTIAZEM. [Concomitant]
     Active Substance: DILTIAZEM

REACTIONS (4)
  - Corneal opacity [None]
  - Blindness [None]
  - Photophobia [None]
  - Vision blurred [None]

NARRATIVE: CASE EVENT DATE: 20210421
